FAERS Safety Report 25620111 (Version 1)
Quarter: 2025Q3

REPORT INFORMATION
  Report Type: Spontaneous
  Country: US (occurrence: US)
  Receive Date: 20250730
  Receipt Date: 20250730
  Transmission Date: 20251021
  Serious: Yes (Life-Threatening, Hospitalization, Other)
  Sender: GLENMARK
  Company Number: US-MLMSERVICE-20250711-PI575153-00232-1

PATIENT
  Age: 66 Year
  Sex: Male

DRUGS (2)
  1. TACROLIMUS [Suspect]
     Active Substance: TACROLIMUS
     Indication: Immunosuppressant drug therapy
     Route: 065
  2. MYFORTIC [Suspect]
     Active Substance: MYCOPHENOLATE SODIUM
     Indication: Immunosuppressant drug therapy
     Route: 065

REACTIONS (8)
  - Troponin increased [Unknown]
  - Blood creatinine increased [Unknown]
  - Pancytopenia [Unknown]
  - Respiratory failure [Unknown]
  - Metabolic acidosis [Unknown]
  - Coagulopathy [Unknown]
  - Legionella infection [Unknown]
  - Pneumonia [Unknown]
